FAERS Safety Report 23831434 (Version 1)
Quarter: 2024Q2

REPORT INFORMATION
  Report Type: Spontaneous
  Country: ZA (occurrence: ZA)
  Receive Date: 20240508
  Receipt Date: 20240508
  Transmission Date: 20240715
  Serious: Yes (Hospitalization)
  Sender: FDA-Public Use
  Company Number: ZA-ABBOTT-2024A-1381084

PATIENT
  Age: 59 Year
  Sex: Male

DRUGS (10)
  1. FENOFIBRATE [Suspect]
     Active Substance: FENOFIBRATE
     Indication: Blood cholesterol abnormal
     Dosage: 200 MG DIRECTIONS TAKE 1 CAPSULE ATNIGHT * REPEATABLE UNTIL 24JUL ?2024)
     Route: 048
  2. MIRTAZAPINE [Concomitant]
     Active Substance: MIRTAZAPINE
     Indication: Depression
     Dosage: 30 MG DIRECTIONS TAKE 1 TABLET DAILY* REPEATABLE UNTIL 24JUL 2024)
     Route: 048
  3. FUROSEMIDE [Concomitant]
     Active Substance: FUROSEMIDE
     Indication: Hypertension
     Dosage: 40 MG DIRECTIONS TAKE 1 TABLET DAILY* REPEATABLE UNTIL 24JUL 2024)
     Route: 048
  4. SOTALOL [Concomitant]
     Active Substance: SOTALOL
     Indication: Hypertension
     Dosage: 80 MG DIRECTIONS TAKE 1 TABLET TWICE DAILY * REPEATABLE UNTIL 24JUL 2024)
     Route: 048
  5. ESCITALOPRAM [Concomitant]
     Active Substance: ESCITALOPRAM OXALATE
     Indication: Depression
     Dosage: 10 MG DIRECTIONS TAKE 1 TABLET DAILY * REPEATABLE UNTIL 24JUL 2024)
     Route: 048
  6. ATORVASTATIN [Concomitant]
     Active Substance: ATORVASTATIN
     Indication: Blood cholesterol abnormal
     Dosage: 40 MG DIRECTIONS TAKE ONE TABLET AT NIGHT AFTER MEALS
     Route: 048
  7. ASPIRIN [Concomitant]
     Active Substance: ASPIRIN
     Indication: Anticoagulant therapy
     Dosage: 100 MG DIRECTIONS TAKE 1 TABLET AT NIGHT* REPEATABLE UNTIL 24JUL 2024)
     Route: 048
  8. ATORVASTATIN CALCIUM [Concomitant]
     Active Substance: ATORVASTATIN CALCIUM
     Indication: Blood cholesterol abnormal
     Dosage: 40 MG DIRECTIONS TAKE 1 TABLET AT NIGHT * REPEATABLE UNTIL 24JUL 2024)
     Route: 048
  9. PAINAMOL [Concomitant]
     Indication: Product used for unknown indication
     Dosage: 500 MG DIRECTIONS TAKE 2 THREE TIMES PER DAY ORALLY, GREEN
     Route: 048
  10. CELEBREX [Concomitant]
     Active Substance: CELECOXIB
     Indication: Pain
     Dosage: 200 MG DIRECTIONS TAKE 1 CAPSULE TWICE A DAY
     Route: 048

REACTIONS (3)
  - Hip fracture [Unknown]
  - Fall [Unknown]
  - Hip surgery [Unknown]
